FAERS Safety Report 7502937-3 (Version None)
Quarter: 2011Q2

REPORT INFORMATION
  Report Type: 
  Country: None (occurrence: None)
  Receive Date: 20110525
  Receipt Date: 20100909
  Transmission Date: 20111010
  Serious: No
  Sender: FDA-Public Use
  Company Number: US-NOVEN-ALL1-2010-04776

PATIENT
  Sex: Male
  Weight: 36.281 kg

DRUGS (4)
  1. DAYTRANA [Suspect]
     Dosage: 15 MG, 1X/DAY:QD
     Route: 062
     Dates: start: 20100825
  2. VERAMYST [Concomitant]
     Dosage: UNK, 1X/DAY:QD (ONE SPRAY PER NOSTRIL)
     Route: 045
     Dates: start: 20090101
  3. ALLERGY INJECTION UNSPECIFIED [Concomitant]
     Dosage: UNK, UNKNOWN
     Route: 065
     Dates: start: 20100801
  4. ZYRTEC [Concomitant]
     Dosage: 10 MG, 1X/DAY:QD
     Route: 048
     Dates: start: 20090101

REACTIONS (3)
  - APPLICATION SITE PRURITUS [None]
  - PRODUCT QUALITY ISSUE [None]
  - APPLICATION SITE ERYTHEMA [None]
